FAERS Safety Report 12782170 (Version 1)
Quarter: 2016Q3

REPORT INFORMATION
  Report Type: Spontaneous
  Country: US (occurrence: US)
  Receive Date: 20160927
  Receipt Date: 20160927
  Transmission Date: 20161109
  Serious: No
  Sender: FDA-Public Use
  Company Number: US-ELI_LILLY_AND_COMPANY-US201511005506

PATIENT
  Sex: Female

DRUGS (4)
  1. HUMATROPE [Suspect]
     Active Substance: SOMATROPIN
     Dosage: 0.5 DF, UNKNOWN
     Route: 065
  2. HUMATROPE [Suspect]
     Active Substance: SOMATROPIN
     Indication: BLOOD GROWTH HORMONE
     Dosage: 0.50 DF, QD
     Route: 065
     Dates: start: 20130531
  3. HUMATROPE [Suspect]
     Active Substance: SOMATROPIN
     Dosage: 0.5 DF, UNKNOWN
     Route: 065
  4. OMEPRAZOLE. [Concomitant]
     Active Substance: OMEPRAZOLE
     Indication: PRODUCT USED FOR UNKNOWN INDICATION
     Dosage: UNK, UNKNOWN
     Route: 065

REACTIONS (3)
  - Drug dose omission [Unknown]
  - Drug dose omission [Unknown]
  - Middle insomnia [Not Recovered/Not Resolved]

NARRATIVE: CASE EVENT DATE: 20160909
